FAERS Safety Report 4809303-X (Version None)
Quarter: 2005Q4

REPORT INFORMATION
  Report Type: 
  Country: None (occurrence: None)
  Receive Date: 20051021
  Receipt Date: 20030728
  Transmission Date: 20060501
  Serious: Yes (Hospitalization, Other)
  Sender: FDA-Public Use
  Company Number: USA030742508

PATIENT
  Sex: Male

DRUGS (8)
  1. ZYPREXA [Suspect]
     Indication: BIPOLAR DISORDER
     Dosage: 20 MG/DAY
  2. LITHIUM [Concomitant]
  3. TOPAMAX [Concomitant]
  4. LORAZEPAM [Concomitant]
  5. ARTANE [Concomitant]
  6. DOXEPIN HCL [Concomitant]
  7. PERIACTN (CYPROHEPTADINE HYDROCHLORIDE) [Concomitant]
  8. SEROQUEL [Concomitant]

REACTIONS (2)
  - NEUROLEPTIC MALIGNANT SYNDROME [None]
  - WHITE BLOOD CELL COUNT INCREASED [None]
